FAERS Safety Report 25739173 (Version 1)
Quarter: 2025Q3

REPORT INFORMATION
  Report Type: Report from Study
  Country: US (occurrence: US)
  Receive Date: 20250829
  Receipt Date: 20250829
  Transmission Date: 20251021
  Serious: Yes (Other)
  Sender: TAKEDA
  Company Number: US-TAKEDA-2025TUS067990

PATIENT
  Sex: Female

DRUGS (1)
  1. VEDOLIZUMAB [Suspect]
     Active Substance: VEDOLIZUMAB
     Indication: Colitis ulcerative

REACTIONS (11)
  - Haematochezia [Unknown]
  - Haemorrhage [Unknown]
  - Product availability issue [Unknown]
  - Stress [Unknown]
  - Diarrhoea [Unknown]
  - Feeling abnormal [Unknown]
  - Contusion [Unknown]
  - Disorientation [Unknown]
  - Confusional state [Unknown]
  - Speech disorder [Unknown]
  - Lymphadenopathy [Recovering/Resolving]
